FAERS Safety Report 16860050 (Version 1)
Quarter: 2019Q3

REPORT INFORMATION
  Report Type: Spontaneous
  Country: ES (occurrence: ES)
  Receive Date: 20190927
  Receipt Date: 20190927
  Transmission Date: 20191005
  Serious: Yes (Death, Other)
  Sender: FDA-Public Use
  Company Number: ES-CLINIGEN GROUP PLC/ CLINIGEN HEALTHCARE LTD-ES-CLGN-19-0012831

PATIENT
  Age: 81 Year
  Sex: Female

DRUGS (1)
  1. FOSCARNET SODIUM. [Suspect]
     Active Substance: FOSCARNET SODIUM
     Indication: CYTOMEGALOVIRUS COLITIS
     Dosage: ()
     Route: 042
     Dates: start: 20190611, end: 20190614

REACTIONS (3)
  - Hypophosphataemia [Recovered/Resolved]
  - Off label use [Unknown]
  - Cytomegalovirus colitis [Fatal]

NARRATIVE: CASE EVENT DATE: 20190614
